FAERS Safety Report 10787176 (Version 1)
Quarter: 2015Q1

REPORT INFORMATION
  Report Type: Spontaneous
  Country: US (occurrence: US)
  Receive Date: 20150211
  Receipt Date: 20150211
  Transmission Date: 20150721
  Serious: Yes (Other)
  Sender: FDA-Public Use
  Company Number: US-JAZZ-2015-US-001447

PATIENT
  Age: 17 Year
  Sex: Male
  Weight: 94.33 kg

DRUGS (3)
  1. XYREM [Suspect]
     Active Substance: SODIUM OXYBATE
     Indication: SOMNOLENCE
  2. XYREM [Suspect]
     Active Substance: SODIUM OXYBATE
     Indication: NARCOLEPSY
     Dosage: 2.25 G, BID
     Route: 048
     Dates: start: 20150124
  3. XYREM [Suspect]
     Active Substance: SODIUM OXYBATE
     Indication: CATAPLEXY

REACTIONS (7)
  - Seizure [Recovered/Resolved]
  - Snoring [Recovered/Resolved]
  - Somnambulism [Recovered/Resolved]
  - Restless legs syndrome [Unknown]
  - Product use issue [Unknown]
  - Tremor [Unknown]
  - Dysarthria [Unknown]

NARRATIVE: CASE EVENT DATE: 2015
